FAERS Safety Report 11596748 (Version 2)
Quarter: 2016Q1

REPORT INFORMATION
  Report Type: Spontaneous
  Country: US (occurrence: US)
  Receive Date: 20151006
  Receipt Date: 20160226
  Transmission Date: 20160525
  Serious: Yes (Death, Hospitalization)
  Sender: FDA-Public Use
  Company Number: US-UNITED THERAPEUTICS-UNT-2015-012259

PATIENT
  Age: 64 Year
  Sex: Male

DRUGS (1)
  1. REMODULIN [Suspect]
     Active Substance: TREPROSTINIL
     Indication: PULMONARY ARTERIAL HYPERTENSION
     Dosage: 0.0331 ?G/KG, CONTINUING
     Route: 041
     Dates: start: 20130604

REACTIONS (2)
  - Haemoptysis [Fatal]
  - Pneumonia [Fatal]

NARRATIVE: CASE EVENT DATE: 20150921
